FAERS Safety Report 20804238 (Version 1)
Quarter: 2022Q2

REPORT INFORMATION
  Report Type: Report from Study
  Country: US (occurrence: US)
  Receive Date: 20220509
  Receipt Date: 20220509
  Transmission Date: 20220720
  Serious: Yes (Other)
  Sender: FDA-Public Use
  Company Number: US-MYLANLABS-2022M1034073

PATIENT
  Age: 48 Year
  Sex: Female

DRUGS (6)
  1. FLUOROURACIL [Suspect]
     Active Substance: FLUOROURACIL
     Indication: Pancreatic carcinoma metastatic
     Dosage: INITIALLY RECEIVED FOR 6 MONTHS AS A PART OF FOLFIRINOX REGIMEN
     Route: 065
  2. FLUOROURACIL [Suspect]
     Active Substance: FLUOROURACIL
     Dosage: CONTINUED AS A PART OF FOLFIRI REGIMEN
     Route: 065
  3. IRINOTECAN [Suspect]
     Active Substance: IRINOTECAN
     Indication: Pancreatic carcinoma metastatic
     Dosage: INITIALLY RECEIVED FOR 6 MONTHS AS A PART OF FOLFIRINOX REGIMEN
     Route: 065
  4. IRINOTECAN [Suspect]
     Active Substance: IRINOTECAN
     Dosage: CONTINUED AS A PART OF FOLFIRI REGIMEN
     Route: 065
  5. LEUCOVORIN [Concomitant]
     Active Substance: LEUCOVORIN
     Indication: Product used for unknown indication
     Dosage: INITIALLY RECEIVED FOR 6 MONTHS AS A PART OF FOLFIRINOX REGIMEN
     Route: 065
  6. LEUCOVORIN [Concomitant]
     Active Substance: LEUCOVORIN
     Dosage: CONTINUED AS A PART OF FOLFIRI REGIMEN
     Route: 065

REACTIONS (1)
  - Drug resistance [Unknown]
